FAERS Safety Report 4488062-7 (Version None)
Quarter: 2004Q4

REPORT INFORMATION
  Report Type: 
  Country: None (occurrence: None)
  Receive Date: 20041025
  Receipt Date: 20040824
  Transmission Date: 20050328
  Serious: Yes (Hospitalization)
  Sender: FDA-Public Use
  Company Number: ATO-03-0605

PATIENT
  Age: 73 Year
  Sex: Male
  Weight: 68 kg

DRUGS (6)
  1. TRISENOX [Suspect]
     Indication: MYELODYSPLASTIC SYNDROME
     Dosage: 20 MG (0.3 MG/KG, 5 DOSE LOAD: TWICE/WK), IVI
     Dates: start: 20030924, end: 20030928
  2. KCL TAB [Concomitant]
  3. RANITIDINE [Concomitant]
  4. ALIZAPRIDE [Concomitant]
  5. METHYLPREDNISOLONE [Concomitant]
  6. MOVICOL [Concomitant]

REACTIONS (2)
  - HYPERSENSITIVITY [None]
  - PNEUMONIA [None]
